FAERS Safety Report 20144429 (Version 2)
Quarter: 2022Q1

REPORT INFORMATION
  Report Type: Spontaneous
  Country: US (occurrence: US)
  Receive Date: 20211203
  Receipt Date: 20220125
  Transmission Date: 20220424
  Serious: Yes (Other)
  Sender: FDA-Public Use
  Company Number: US-BAYER-2021A260638

PATIENT
  Age: 19 Year
  Sex: Female

DRUGS (2)
  1. MIRENA [Suspect]
     Active Substance: LEVONORGESTREL
     Indication: Contraception
     Dosage: 20?G/DAY
     Route: 015
     Dates: start: 20200121, end: 20211201
  2. IBUPROFEN [Concomitant]
     Active Substance: IBUPROFEN
     Dosage: UNK
     Dates: start: 20211201

REACTIONS (3)
  - Genital haemorrhage [Recovered/Resolved]
  - Device expulsion [Recovered/Resolved]
  - Abdominal pain lower [Recovered/Resolved]

NARRATIVE: CASE EVENT DATE: 20211001
